FAERS Safety Report 7663461-0 (Version None)
Quarter: 2011Q3

REPORT INFORMATION
  Report Type: 
  Country: None (occurrence: None)
  Receive Date: 20110805
  Receipt Date: 20100730
  Transmission Date: 20111222
  Serious: No
  Sender: FDA-Public Use
  Company Number: US-ABBOTT-10P-163-0658640-00

PATIENT
  Sex: Male
  Weight: 77.18 kg

DRUGS (2)
  1. NIASPAN [Suspect]
     Indication: PRODUCT USED FOR UNKNOWN INDICATION
     Dosage: 500MG; 2 TABLETS AT BEDTIME
  2. ASPIRIN [Concomitant]
     Indication: PRODUCT USED FOR UNKNOWN INDICATION

REACTIONS (4)
  - FEELING HOT [None]
  - ERYTHEMA [None]
  - SKIN REACTION [None]
  - FLUSHING [None]
